FAERS Safety Report 8041022-1 (Version None)
Quarter: 2012Q1

REPORT INFORMATION
  Report Type: 
  Country: None (occurrence: None)
  Receive Date: 20120109
  Receipt Date: 20111229
  Transmission Date: 20120608
  Serious: Yes (Death, Hospitalization)
  Sender: FDA-Public Use
  Company Number: UTC-014046

PATIENT
  Age: 58 Year
  Sex: Male
  Weight: 104.5 kg

DRUGS (5)
  1. ASPIRIN [Concomitant]
  2. ADCIRCA [Concomitant]
  3. DIGOXIN [Concomitant]
  4. REMODULIN [Suspect]
     Indication: PULMONARY ARTERIAL HYPERTENSION
     Dosage: 37.44 UG/KG (0.026 UG/KG,1 IN 1 MIN), INTRAVENOUS
     Route: 042
     Dates: start: 20110603
  5. DIURETICS [Concomitant]

REACTIONS (1)
  - DEATH [None]
